FAERS Safety Report 6832738-0 (Version None)
Quarter: 2010Q3

REPORT INFORMATION
  Report Type: 
  Country: None (occurrence: None)
  Receive Date: 20100707
  Receipt Date: 20100624
  Transmission Date: 20110219
  Serious: Yes (Other)
  Sender: FDA-Public Use
  Company Number: 2010AP001324

PATIENT
  Age: 83 Year
  Sex: Female

DRUGS (1)
  1. PRAVASTATIN SODIUM [Suspect]
     Indication: HYPERLIPIDAEMIA
     Dosage: 20 MG; PO
     Route: 048
     Dates: start: 20100604, end: 20100608

REACTIONS (2)
  - DIZZINESS [None]
  - PALPITATIONS [None]
